FAERS Safety Report 4471961-X (Version None)
Quarter: 2004Q4

REPORT INFORMATION
  Report Type: 
  Country: None (occurrence: None)
  Receive Date: 20041008
  Receipt Date: 20040923
  Transmission Date: 20050328
  Serious: Yes (Hospitalization)
  Sender: FDA-Public Use
  Company Number: 239476

PATIENT
  Age: 34 Year
  Sex: Male
  Weight: 65 kg

DRUGS (7)
  1. NOVORAPID (INSULIN ASPART) SOLUTION FOR INJECTION 100 U/ML [Suspect]
     Indication: DIABETES MELLITUS INSULIN-DEPENDENT
     Dosage: 34 IU, QD, SUBCUTANEOUS
     Route: 058
     Dates: start: 20000101
  2. PROTAPHANE (INSULIN HUMAN) SUSPENSION FOR INJECTION [Suspect]
     Indication: DIABETES MELLITUS INSULIN-DEPENDENT
     Dosage: 30 IU, QD, SUBCUTANEOUS
     Route: 058
     Dates: start: 20000101
  3. AZATHIOPRINE [Concomitant]
  4. CALCIUM (CALCIUM) [Concomitant]
  5. DEKRISTOL (COLECALCIFEROL) [Concomitant]
  6. PREDNISOLONE [Concomitant]
  7. MESALAMINE [Concomitant]

REACTIONS (8)
  - CONVULSION [None]
  - FALL [None]
  - HEART RATE INCREASED [None]
  - HYPERTENSION [None]
  - HYPOGLYCAEMIA [None]
  - PHIMOSIS [None]
  - THORACIC VERTEBRAL FRACTURE [None]
  - TONGUE BITING [None]
